FAERS Safety Report 18677543 (Version 4)
Quarter: 2021Q1

REPORT INFORMATION
  Report Type: Report from Study
  Country: FR (occurrence: FR)
  Receive Date: 20201229
  Receipt Date: 20210129
  Transmission Date: 20210419
  Serious: Yes (Death, Hospitalization, Other)
  Sender: FDA-Public Use
  Company Number: FR-BRISTOL-MYERS SQUIBB COMPANY-BMS-2020-110898

PATIENT
  Age: 46 Year
  Sex: Male
  Weight: 117 kg

DRUGS (9)
  1. IPILIMUMAB [Suspect]
     Active Substance: IPILIMUMAB
     Indication: MALIGNANT MELANOMA
     Dosage: 3.0 MILLIGRAM/KILOGRAM
     Route: 042
     Dates: start: 20201021
  2. INFLIXIMAB [Suspect]
     Active Substance: INFLIXIMAB
     Indication: MALIGNANT MELANOMA
     Dosage: 5 MILLIGRAM/KILOGRAM
     Route: 042
     Dates: start: 20201021, end: 20201223
  3. NIVOLUMAB [Suspect]
     Active Substance: NIVOLUMAB
     Dosage: 126 MILLIGRAM
     Route: 042
     Dates: start: 20201021, end: 20201202
  4. INFLIXIMAB [Suspect]
     Active Substance: INFLIXIMAB
     Dosage: 630 MILLIGRAM
     Route: 042
     Dates: start: 20201021, end: 20201202
  5. ESIDRIX [Concomitant]
     Active Substance: HYDROCHLOROTHIAZIDE
     Indication: PRODUCT USED FOR UNKNOWN INDICATION
     Dosage: 25 MILLIGRAM
     Route: 048
  6. ALLOPURINOL. [Concomitant]
     Active Substance: ALLOPURINOL
     Indication: PRODUCT USED FOR UNKNOWN INDICATION
     Dosage: UNK
     Route: 065
  7. NIVOLUMAB [Suspect]
     Active Substance: NIVOLUMAB
     Indication: MALIGNANT MELANOMA
     Dosage: 1 MILLIGRAM/KILOGRAM
     Route: 042
     Dates: start: 20201021
  8. IPILIMUMAB [Suspect]
     Active Substance: IPILIMUMAB
     Dosage: 378 MILLIGRAM
     Route: 042
     Dates: start: 20201021, end: 20201202
  9. LERCANIDIPINE [Concomitant]
     Active Substance: LERCANIDIPINE
     Indication: PRODUCT USED FOR UNKNOWN INDICATION
     Dosage: UNK
     Route: 065

REACTIONS (2)
  - Malignant neoplasm progression [Fatal]
  - Gastrointestinal toxicity [Not Recovered/Not Resolved]

NARRATIVE: CASE EVENT DATE: 20201216
